FAERS Safety Report 16278317 (Version 1)
Quarter: 2019Q2

REPORT INFORMATION
  Report Type: Spontaneous
  Country: DE (occurrence: DE)
  Receive Date: 20190506
  Receipt Date: 20190506
  Transmission Date: 20190711
  Serious: Yes (Other)
  Sender: FDA-Public Use
  Company Number: DE-BRISTOL-MYERS SQUIBB COMPANY-BMS-2019-041295

PATIENT
  Age: 81 Year
  Sex: Male

DRUGS (1)
  1. NIVOLUMAB [Suspect]
     Active Substance: NIVOLUMAB
     Indication: BRONCHIAL CARCINOMA
     Dosage: UNK
     Route: 065
     Dates: start: 201802

REACTIONS (5)
  - Shock haemorrhagic [Unknown]
  - Colitis [Unknown]
  - Weight decreased [Unknown]
  - Gastrointestinal ulcer [Unknown]
  - Ulcer haemorrhage [Unknown]
